FAERS Safety Report 21086389 (Version 1)
Quarter: 2022Q3

REPORT INFORMATION
  Report Type: Spontaneous
  Country: US (occurrence: US)
  Receive Date: 20220715
  Receipt Date: 20220715
  Transmission Date: 20221027
  Serious: No
  Sender: FDA-Public Use
  Company Number: US-BRISTOL-MYERS SQUIBB COMPANY-2022-066196

PATIENT
  Age: 71 Year
  Sex: Female

DRUGS (1)
  1. POMALYST [Suspect]
     Active Substance: POMALIDOMIDE
     Indication: Plasma cell myeloma
     Dosage: FREQUENCY- CAPSULE BY MOUTH ONCE DAILY FOR 21DAYS ON AND 7 DAYS OFF.
     Route: 048
     Dates: start: 20220422

REACTIONS (2)
  - Hypoaesthesia [Unknown]
  - Vision blurred [Unknown]
